FAERS Safety Report 15080208 (Version 2)
Quarter: 2018Q4

REPORT INFORMATION
  Report Type: Spontaneous
  Country: JP (occurrence: JP)
  Receive Date: 20180627
  Receipt Date: 20181107
  Transmission Date: 20190204
  Serious: Yes (Other)
  Sender: FDA-Public Use
  Company Number: JP-AMGEN-JPNSP2018087662

PATIENT
  Age: 88 Year
  Sex: Male

DRUGS (3)
  1. ACLARUBICIN [Suspect]
     Active Substance: ACLARUBICIN
     Indication: MYELODYSPLASTIC SYNDROME TRANSFORMATION
     Dosage: UNK
     Route: 042
  2. CYTARABINE. [Suspect]
     Active Substance: CYTARABINE
     Indication: MYELODYSPLASTIC SYNDROME TRANSFORMATION
     Dosage: UNK
     Route: 065
  3. GRAN [Suspect]
     Active Substance: FILGRASTIM
     Indication: MYELODYSPLASTIC SYNDROME TRANSFORMATION
     Dosage: UNK
     Route: 065

REACTIONS (1)
  - Chloroma [Unknown]
